FAERS Safety Report 16872800 (Version 1)
Quarter: 2019Q4

REPORT INFORMATION
  Report Type: Spontaneous
  Country: GB (occurrence: GB)
  Receive Date: 20191001
  Receipt Date: 20191001
  Transmission Date: 20200122
  Serious: Yes (Hospitalization, Other)
  Sender: FDA-Public Use
  Company Number: GB-MYLANLABS-2019M1077383

PATIENT
  Sex: Male
  Weight: 123.1 kg

DRUGS (11)
  1. CLOZARIL [Suspect]
     Active Substance: CLOZAPINE
     Indication: SCHIZOPHRENIA
     Dosage: UNK
     Route: 048
     Dates: start: 20080103
  2. PIRENZEPINE [Concomitant]
     Active Substance: PIRENZEPINE
     Dosage: 50 MILLIGRAM
  3. OMACOR [Concomitant]
     Active Substance: OMEGA-3-ACID ETHYL ESTERS
  4. LANSOPRAZOLE. [Concomitant]
     Active Substance: LANSOPRAZOLE
  5. CLOZARIL [Suspect]
     Active Substance: CLOZAPINE
     Dosage: 250 MILLIGRAM, AM
     Route: 048
     Dates: start: 20110919
  6. SENNA                              /00142201/ [Concomitant]
     Active Substance: SENNA LEAF
     Dosage: 15 MILLIGRAM
  7. RAMIPRIL. [Concomitant]
     Active Substance: RAMIPRIL
     Dosage: 5 MILLIGRAM
  8. ATORVASTATIN [Concomitant]
     Active Substance: ATORVASTATIN
     Dosage: 40 MILLIGRAM
  9. DERMOL                             /00337102/ [Concomitant]
     Active Substance: CLOBETASOL PROPIONATE
  10. CLOZARIL [Suspect]
     Active Substance: CLOZAPINE
     Dosage: 350 MILLIGRAM, PM
     Route: 048
     Dates: start: 20110919
  11. METFORMIN [Concomitant]
     Active Substance: METFORMIN HYDROCHLORIDE

REACTIONS (7)
  - Antipsychotic drug level increased [Recovering/Resolving]
  - Therapeutic response decreased [Unknown]
  - Aggression [Unknown]
  - Type 2 diabetes mellitus [Unknown]
  - Physical assault [Unknown]
  - Body mass index increased [Unknown]
  - Hypertension [Unknown]

NARRATIVE: CASE EVENT DATE: 201207
